FAERS Safety Report 12670975 (Version 1)
Quarter: 2016Q3

REPORT INFORMATION
  Report Type: Spontaneous
  Country: US (occurrence: None)
  Receive Date: 20160819
  Receipt Date: 20160819
  Transmission Date: 20161109
  Serious: Yes (Hospitalization)
  Sender: FDA-Public Use
  Company Number: None

PATIENT
  Age: 21 Year
  Sex: Female
  Weight: 61.24 kg

DRUGS (3)
  1. SYNTHROID [Concomitant]
     Active Substance: LEVOTHYROXINE SODIUM
  2. INSULIN [Concomitant]
     Active Substance: INSULIN NOS
  3. MIRENA [Suspect]
     Active Substance: LEVONORGESTREL
     Dates: start: 20140731, end: 20160818

REACTIONS (7)
  - Dizziness [None]
  - Pyrexia [None]
  - Mood swings [None]
  - Dyspareunia [None]
  - Nausea [None]
  - Device dislocation [None]
  - Constipation [None]

NARRATIVE: CASE EVENT DATE: 20160811
